FAERS Safety Report 11720570 (Version 1)
Quarter: 2015Q4

REPORT INFORMATION
  Report Type: Spontaneous
  Country: FR (occurrence: FR)
  Receive Date: 20151110
  Receipt Date: 20151110
  Transmission Date: 20160304
  Serious: Yes (Other)
  Sender: FDA-Public Use
  Company Number: FR-BRISTOL-MYERS SQUIBB COMPANY-BMS-2015-076816

PATIENT
  Age: 50 Year
  Sex: Male
  Weight: 69.5 kg

DRUGS (1)
  1. YERVOY [Suspect]
     Active Substance: IPILIMUMAB
     Indication: MALIGNANT MELANOMA
     Dosage: UNK
     Route: 065
     Dates: start: 20140226, end: 20140430

REACTIONS (3)
  - Primary hypogonadism [Unknown]
  - Thyroid disorder [Unknown]
  - Adrenal insufficiency [Unknown]
